FAERS Safety Report 6690868-0 (Version None)
Quarter: 2010Q2

REPORT INFORMATION
  Report Type: 
  Country: None (occurrence: None)
  Receive Date: 20100421
  Receipt Date: 20100407
  Transmission Date: 20101027
  Serious: Yes (Hospitalization)
  Sender: FDA-Public Use
  Company Number: ES-MYLANLABS-2010S1005836

PATIENT
  Age: 41 Year
  Sex: Male

DRUGS (1)
  1. LORAZEPAM [Suspect]
     Dosage: DRUG OVERDOSE
     Route: 065

REACTIONS (5)
  - BLISTER [None]
  - COMA [None]
  - HYPERHIDROSIS [None]
  - OVERDOSE [None]
  - TACHYCARDIA [None]
